FAERS Safety Report 7095968-1 (Version None)
Quarter: 2010Q4

REPORT INFORMATION
  Report Type: 
  Country: None (occurrence: None)
  Receive Date: 20101111
  Receipt Date: 20101101
  Transmission Date: 20110411
  Serious: Yes (Hospitalization, Disabling, Other)
  Sender: FDA-Public Use
  Company Number: US-AMGEN-USACT2010003445

PATIENT

DRUGS (4)
  1. ENBREL [Suspect]
     Dosage: UNK
     Dates: start: 20000101, end: 20040101
  2. HUMIRA [Suspect]
     Indication: RHEUMATOID ARTHRITIS
     Dosage: 40 MG, Q2WK
     Route: 058
     Dates: start: 20040101, end: 20100323
  3. ANTIHYPERTENSIVES [Concomitant]
     Route: 048
  4. THYROID PREPARATIONS [Concomitant]
     Dosage: UNK
     Route: 048

REACTIONS (8)
  - CAPILLARY LEAK SYNDROME [None]
  - CELLULITIS [None]
  - LABORATORY TEST ABNORMAL [None]
  - MOBILITY DECREASED [None]
  - PSEUDOMONAS INFECTION [None]
  - SKIN ULCER [None]
  - STAPHYLOCOCCAL INFECTION [None]
  - THROMBOPHLEBITIS [None]
